FAERS Safety Report 8250483-4 (Version None)
Quarter: 2012Q2

REPORT INFORMATION
  Report Type: 
  Country: None (occurrence: None)
  Receive Date: 20120402
  Receipt Date: 20120402
  Transmission Date: 20120825
  Serious: Yes (Hospitalization, Disabling)
  Sender: FDA-Public Use
  Company Number: None

PATIENT
  Age: 76 Year
  Sex: Male
  Weight: 80 kg

DRUGS (15)
  1. FUROSEMIDE [Concomitant]
     Route: 048
  2. LEVOTHYROXINE SODIUM [Concomitant]
     Route: 048
  3. LISINOPRIL [Concomitant]
     Route: 048
  4. VITAMIN E [Concomitant]
     Route: 048
  5. NILOTINIB [Suspect]
     Indication: CHRONIC MYELOID LEUKAEMIA
     Dosage: 400.0 MG
     Route: 048
     Dates: start: 20110201, end: 20120330
  6. PLAVIX [Concomitant]
     Route: 048
  7. CALCIUM AND VITAMIN D [Concomitant]
     Route: 048
  8. ASPIRIN [Concomitant]
     Route: 048
  9. LUTEIN [Concomitant]
     Route: 048
  10. ZETIA [Concomitant]
     Indication: CHRONIC MYELOID LEUKAEMIA
     Route: 048
  11. METOPROLOL SUCCINATE [Concomitant]
     Route: 048
  12. PROSTATE HEALTH [Concomitant]
     Route: 048
  13. LOVAZA [Concomitant]
     Route: 048
  14. MULTI-VITAMIN [Concomitant]
     Route: 048
  15. TAMSULOSIN HCL [Concomitant]
     Route: 048

REACTIONS (1)
  - PLEURAL EFFUSION [None]
